FAERS Safety Report 4286401-3 (Version None)
Quarter: 2004Q1

REPORT INFORMATION
  Report Type: 
  Country: None (occurrence: None)
  Receive Date: 20040126
  Receipt Date: 20030915
  Transmission Date: 20041129
  Serious: Yes (Hospitalization, Other)
  Sender: FDA-Public Use
  Company Number: USA030843776

PATIENT
  Age: 71 Year
  Sex: Female
  Weight: 74 kg

DRUGS (9)
  1. EVISTA [Suspect]
     Indication: OSTEOPOROSIS
     Dates: start: 20010101
  2. FORTEO [Suspect]
     Indication: OSTEOPOROSIS
     Dosage: 20 UG/DAY
     Dates: start: 20030801
  3. MOTRIN [Concomitant]
  4. CALCIUM [Concomitant]
  5. CELEBREX [Concomitant]
  6. LEVOXYL (LEVOTHROXINE SODIUM) [Concomitant]
  7. PAXIL [Concomitant]
  8. VITAMIN CAP [Concomitant]
  9. GARLIC [Concomitant]

REACTIONS (5)
  - ARTHRALGIA [None]
  - BACK PAIN [None]
  - FALL [None]
  - KNEE ARTHROPLASTY [None]
  - MUSCLE CRAMP [None]
